FAERS Safety Report 7560895-X (Version None)
Quarter: 2011Q2

REPORT INFORMATION
  Report Type: 
  Country: None (occurrence: None)
  Receive Date: 20110621
  Receipt Date: 20101207
  Transmission Date: 20111010
  Serious: No
  Sender: FDA-Public Use
  Company Number: US-ASTRAZENECA-2010SE57837

PATIENT
  Age: 77 Year
  Sex: Female
  Weight: 54.9 kg

DRUGS (4)
  1. LIPITOR [Suspect]
     Route: 065
  2. CANDESARTAN CILEXETIL [Suspect]
     Indication: HYPERTENSION
     Route: 048
  3. CRESTOR [Suspect]
     Indication: BLOOD CHOLESTEROL INCREASED
     Route: 048
     Dates: start: 20101101
  4. CANDESARTAN CILEXETIL [Suspect]
     Route: 048

REACTIONS (4)
  - PAIN IN EXTREMITY [None]
  - MYALGIA [None]
  - CHROMATURIA [None]
  - MUSCLE SPASMS [None]
